FAERS Safety Report 23084232 (Version 2)
Quarter: 2023Q4

REPORT INFORMATION
  Report Type: Spontaneous
  Country: US (occurrence: US)
  Receive Date: 20231019
  Receipt Date: 20231020
  Transmission Date: 20240110
  Serious: No
  Sender: FDA-Public Use
  Company Number: US-PFIZER INC-2019083323

PATIENT
  Age: 42 Year
  Sex: Female

DRUGS (4)
  1. SYNAREL [Suspect]
     Active Substance: NAFARELIN ACETATE
     Indication: Pelvic pain
     Dosage: 1 SPRAY IN ONE NOSTRIL IN THE MORNING AND 1 SPRAY INTO OTHER NOSTRIL IN EVENING
     Route: 045
  2. SYNAREL [Suspect]
     Active Substance: NAFARELIN ACETATE
     Indication: Endometriosis
     Dosage: 1-2 SPRAYS DAILY
  3. SYNAREL [Suspect]
     Active Substance: NAFARELIN ACETATE
     Dosage: 1 SPRAY AM + PM
  4. SYNAREL [Suspect]
     Active Substance: NAFARELIN ACETATE
     Dosage: 1 SPRAY NOSTRIL AND PM

REACTIONS (1)
  - Off label use [Unknown]
